FAERS Safety Report 8012680-2 (Version None)
Quarter: 2011Q4

REPORT INFORMATION
  Report Type: 
  Country: None (occurrence: None)
  Receive Date: 20111223
  Receipt Date: 20111223
  Transmission Date: 20120403
  Serious: Yes (Hospitalization, Disabling, Other)
  Sender: FDA-Public Use
  Company Number: None

PATIENT
  Sex: Female

DRUGS (3)
  1. HUMIRA [Suspect]
     Indication: RHEUMATOID ARTHRITIS
     Dosage: HUMIRA 40 MG EVERY 15 DAYS SQ
     Route: 058
     Dates: start: 20061117, end: 20090921
  2. METHOTREXATE [Suspect]
     Dosage: METROTREXATE 10 MG WEEKLY ORAL
     Route: 048
  3. ENBREL [Concomitant]

REACTIONS (2)
  - METASTASES TO LUNG [None]
  - SALIVARY GLAND CANCER [None]
